FAERS Safety Report 6915933 (Version 2)
Quarter: 2013Q2

REPORT INFORMATION
  Report Type: Report from Study
  Country: US (occurrence: US)
  Receive Date: 20090223
  Receipt Date: 20130605
  Transmission Date: 20140414
  Serious: Yes (Hospitalization)
  Sender: FDA-Public Use
  Company Number: US-PFIZER INC-2009160217

PATIENT
  Age: 68 Year
  Sex: Male
  Weight: 81 kg

DRUGS (14)
  1. AMLODIPINE/ATORVASTATIN [Suspect]
     Indication: HYPERTENSION
     Dosage: 10 MG/20 MG, 1X/DAY
     Route: 048
  2. AMLODIPINE/ATORVASTATIN [Suspect]
     Indication: HYPERLIPIDAEMIA
  3. PALMAZ GENESIS [Suspect]
     Dosage: UNK
     Dates: start: 20070823
  4. ACETYLSALICYLIC ACID [Concomitant]
  5. FISH OIL [Concomitant]
  6. FOLIC ACID [Concomitant]
  7. HYDROCHLOROTHIAZIDE [Concomitant]
  8. METOPROLOL [Concomitant]
  9. HYDROXYCHLOROQUINE [Concomitant]
  10. POTASSIUM [Concomitant]
  11. VITAMIN C [Concomitant]
  12. VITAMIN D [Concomitant]
  13. IRON W/FOLIC ACID [Concomitant]
     Dosage: UNK
  14. BUMEX [Concomitant]

REACTIONS (3)
  - Dyspnoea exertional [Recovering/Resolving]
  - Coronary artery disease [Recovering/Resolving]
  - Coronary artery disease [Recovered/Resolved]
